FAERS Safety Report 20081400 (Version 1)
Quarter: 2021Q4

REPORT INFORMATION
  Report Type: Spontaneous
  Country: NL (occurrence: NL)
  Receive Date: 20211117
  Receipt Date: 20211117
  Transmission Date: 20220303
  Serious: Yes (Other)
  Sender: FDA-Public Use
  Company Number: None

PATIENT
  Age: 75 Year
  Sex: Female
  Weight: 51.3 kg

DRUGS (2)
  1. CAPECITABINE [Suspect]
     Active Substance: CAPECITABINE
     Indication: Product used for unknown indication
     Dosage: 1500 MG,2DD3, FOR 14 DAYS, 3 WEEK CYCLE
     Dates: start: 20210622, end: 20210819
  2. FENTANYL [Concomitant]
     Active Substance: FENTANYL
     Dosage: PLASTER 12 MCG/H/ ((GENERIC+DUROGESIC) / BRAND NAME NOT SPECIFIED,THERAPY START DATE :ASKU, THERAPY

REACTIONS (1)
  - Intestinal pseudo-obstruction [Not Recovered/Not Resolved]

NARRATIVE: CASE EVENT DATE: 20210809
